FAERS Safety Report 5147822-X (Version None)
Quarter: 2006Q4

REPORT INFORMATION
  Report Type: 
  Country: None (occurrence: None)
  Receive Date: 20061110
  Receipt Date: 20060919
  Transmission Date: 20070319
  Serious: Yes (Other)
  Sender: FDA-Public Use
  Company Number: PHEH2006US11920

PATIENT
  Age: 56 Year
  Sex: Male

DRUGS (4)
  1. ZOMETA [Suspect]
     Indication: METASTASES TO BONE
     Dosage: 4 MG Q 4 WEEKS
     Route: 042
     Dates: start: 20060101, end: 20060801
  2. AVASTIN [Concomitant]
     Indication: RENAL CELL CARCINOMA STAGE UNSPECIFIED
     Dosage: UNK, UNK
     Dates: start: 20060101, end: 20060601
  3. SUTENT [Concomitant]
     Indication: RENAL CELL CARCINOMA STAGE UNSPECIFIED
     Dosage: UNK, UNK
     Dates: start: 20060701, end: 20060901
  4. SORAFENIB [Concomitant]
     Indication: RENAL CELL CARCINOMA STAGE UNSPECIFIED
     Dosage: UNK, UNK
     Dates: start: 20060101, end: 20060601

REACTIONS (5)
  - BONE DEBRIDEMENT [None]
  - BONE DISORDER [None]
  - GINGIVITIS [None]
  - OSTEONECROSIS [None]
  - PRIMARY SEQUESTRUM [None]
